FAERS Safety Report 10171861 (Version 1)
Quarter: 2014Q2

REPORT INFORMATION
  Report Type: Spontaneous
  Country: GB (occurrence: None)
  Receive Date: 20140428
  Receipt Date: 20140428
  Transmission Date: 20141212
  Serious: Yes (Life-Threatening)
  Sender: FDA-Public Use
  Company Number: 2013GMK004616

PATIENT
  Age: 67 Year
  Sex: Female
  Weight: 73 kg

DRUGS (6)
  1. ROPINIROLE [Suspect]
     Indication: PARKINSON^S DISEASE
     Route: 048
     Dates: start: 20070629, end: 200905
  2. REQUIP XL [Suspect]
     Indication: PARKINSON^S DISEASE
     Route: 048
     Dates: start: 20120208
  3. REQUIP XL [Suspect]
     Indication: PARKINSON^S DISEASE
     Dosage: 12 MG, OD
     Dates: start: 200905
  4. MADOPAR (BENSERAZIDE HYDROCHLORIDE, LEVODOPA) [Concomitant]
  5. OXYBUTYNIN (OXYBUTYNIN) [Concomitant]
  6. RASAGILINE (TASAGILINE) [Concomitant]

REACTIONS (2)
  - Disturbance in attention [None]
  - Somnambulism [None]
